FAERS Safety Report 7720852-7 (Version None)
Quarter: 2011Q3

REPORT INFORMATION
  Report Type: 
  Country: None (occurrence: None)
  Receive Date: 20110830
  Receipt Date: 20110830
  Transmission Date: 20111222
  Serious: No
  Sender: FDA-Public Use
  Company Number: None

PATIENT
  Age: 49 Year
  Sex: Female
  Weight: 70.3075 kg

DRUGS (1)
  1. PLAQUINOL TAB [Suspect]
     Indication: DRUG DISPENSING ERROR
     Dosage: 200 MG DAILY
     Dates: start: 20110114, end: 20110223

REACTIONS (12)
  - RASH MACULAR [None]
  - PAIN [None]
  - JOINT SWELLING [None]
  - PRURITUS [None]
  - SKIN EXFOLIATION [None]
  - SWELLING FACE [None]
  - PAIN IN EXTREMITY [None]
  - OEDEMA PERIPHERAL [None]
  - ADVERSE REACTION [None]
  - TONGUE OEDEMA [None]
  - OROPHARYNGEAL PAIN [None]
  - EAR PAIN [None]
